FAERS Safety Report 6831485-9 (Version None)
Quarter: 2010Q3

REPORT INFORMATION
  Report Type: 
  Country: None (occurrence: None)
  Receive Date: 20100712
  Receipt Date: 20100702
  Transmission Date: 20110219
  Serious: Yes (Other)
  Sender: FDA-Public Use
  Company Number: B0664777A

PATIENT
  Age: 67 Year
  Sex: Female

DRUGS (4)
  1. NABUCOX [Suspect]
     Indication: PRODUCT USED FOR UNKNOWN INDICATION
     Dosage: 500MG TWICE PER DAY
     Route: 048
     Dates: start: 20100401
  2. INIPOMP [Concomitant]
     Route: 065
  3. IXPRIM [Concomitant]
     Route: 065
  4. EFFEXOR [Concomitant]

REACTIONS (1)
  - CYTOLYTIC HEPATITIS [None]
